FAERS Safety Report 9226533 (Version 2)
Quarter: 2013Q2

REPORT INFORMATION
  Report Type: Spontaneous
  Country: JP (occurrence: JP)
  Receive Date: 20130412
  Receipt Date: 20130415
  Transmission Date: 20140414
  Serious: Yes (Hospitalization)
  Sender: FDA-Public Use
  Company Number: JP-GE HEALTHCARE MEDICAL DIAGNOSTICS-OMPQ-NO-1304S-0425

PATIENT
  Age: 82 Year
  Sex: Female

DRUGS (9)
  1. OMNIPAQUE [Suspect]
     Indication: METASTASES TO LARGE INTESTINE
     Route: 042
     Dates: start: 20130220, end: 20130220
  2. OMNIPAQUE [Suspect]
     Indication: DIAGNOSTIC PROCEDURE
  3. URSO [Concomitant]
  4. STANZOME [Concomitant]
  5. LAC B [Concomitant]
  6. RHYTHMY [Concomitant]
  7. CERCINE [Concomitant]
  8. REZALTAS [Concomitant]
  9. ISOTONIC SODIUM CHLORIDE SOLUTION [Concomitant]

REACTIONS (7)
  - Pulmonary infarction [Unknown]
  - Peripheral coldness [Unknown]
  - Unresponsive to stimuli [Recovered/Resolved]
  - Breath sounds abnormal [Unknown]
  - Chills [Unknown]
  - Blood pressure decreased [Recovered/Resolved]
  - Loss of consciousness [Recovered/Resolved]
